FAERS Safety Report 9779001 (Version 1)
Quarter: 2013Q4

REPORT INFORMATION
  Report Type: Spontaneous
  Country: CH (occurrence: CH)
  Receive Date: 20131223
  Receipt Date: 20131223
  Transmission Date: 20140711
  Serious: Yes (Other)
  Sender: FDA-Public Use
  Company Number: CH-BRISTOL-MYERS SQUIBB COMPANY-19922541

PATIENT
  Age: 71 Year
  Sex: Male

DRUGS (3)
  1. CARBOPLATIN [Suspect]
     Indication: ADENOCARCINOMA GASTRIC
     Dosage: 21DEC2012TO01JAN13 1ST CYCLE?22FEB13TO24MAR13 3RD CYCLE?24MAY13TO09JUL13 CYCLE 4 TO 6
     Dates: start: 20121221
  2. XELODA [Suspect]
     Indication: ADENOCARCINOMA GASTRIC
     Dosage: 21DEC2012TO01JAN13 1ST CYCLE?22FEB13TO24MAR13 3RD CYCLE?24MAY13TO09JUL13 CYCLE 4 TO 6
     Dates: start: 20121221
  3. HERCEPTIN [Suspect]
     Indication: ADENOCARCINOMA GASTRIC
     Dosage: 21DEC2012TO01JAN13 1ST CYCLE?22FEB13TO24MAR13 3RD CYCLE?24MAY13TO09JUL13 CYCLE 4 TO 6
     Dates: start: 20121221

REACTIONS (3)
  - Malignant neoplasm progression [Unknown]
  - Retroperitoneal abscess [Unknown]
  - Diverticular perforation [Unknown]
